FAERS Safety Report 10918500 (Version 1)
Quarter: 2015Q1

REPORT INFORMATION
  Report Type: Spontaneous
  Country: US (occurrence: US)
  Receive Date: 20150316
  Receipt Date: 20150316
  Transmission Date: 20150721
  Serious: No
  Sender: FDA-Public Use
  Company Number: US-GALDERMA-US14003512

PATIENT
  Age: 29 Year
  Sex: Female

DRUGS (7)
  1. NEUTROGENA PORE REFINING EXFOLIATING CLEANSER [Concomitant]
     Indication: THERAPEUTIC SKIN CARE TOPICAL
     Route: 061
     Dates: start: 201401
  2. BARE MINERALS COSMETICS [Concomitant]
     Route: 061
     Dates: start: 200909
  3. RETIN-A [Concomitant]
     Active Substance: TRETINOIN
     Dosage: 0.25%
     Route: 061
  4. CLINIQUE MOISTURIZER [Concomitant]
     Active Substance: COSMETICS
     Indication: DRY SKIN PROPHYLAXIS
     Route: 061
     Dates: start: 201301
  5. DOXYCYCLINE. [Concomitant]
     Active Substance: DOXYCYCLINE
  6. CLINDAMYCIN GEL [Concomitant]
     Route: 061
  7. TRI-LUMA [Suspect]
     Active Substance: FLUOCINOLONE ACETONIDE\HYDROQUINONE\TRETINOIN
     Indication: PIGMENTATION DISORDER
     Route: 061
     Dates: start: 201408, end: 201408

REACTIONS (1)
  - Blister [Recovered/Resolved]

NARRATIVE: CASE EVENT DATE: 201408
